FAERS Safety Report 24783393 (Version 1)
Quarter: 2024Q4

REPORT INFORMATION
  Report Type: Spontaneous
  Country: US (occurrence: US)
  Receive Date: 20241227
  Receipt Date: 20241227
  Transmission Date: 20250115
  Serious: Yes (Other)
  Sender: UNKNOWN
  Company Number: US-OTTER-US-2024AST000392

PATIENT
  Age: 68 Year
  Sex: Female

DRUGS (1)
  1. METHOTREXATE [Suspect]
     Active Substance: METHOTREXATE
     Indication: Erdheim-Chester disease
     Dosage: UNK, HIGH DOSE
     Route: 065

REACTIONS (3)
  - Hypertensive emergency [Unknown]
  - Renal failure [Unknown]
  - Off label use [Unknown]
